FAERS Safety Report 16595700 (Version 1)
Quarter: 2019Q3

REPORT INFORMATION
  Report Type: Spontaneous
  Country: US (occurrence: US)
  Receive Date: 20190719
  Receipt Date: 20190719
  Transmission Date: 20191004
  Serious: No
  Sender: FDA-Public Use
  Company Number: US-009507513-1906USA009196

PATIENT
  Sex: Female

DRUGS (1)
  1. NEXPLANON [Suspect]
     Active Substance: ETONOGESTREL
     Dosage: IMPLANT
     Dates: start: 201610

REACTIONS (3)
  - Device deployment issue [Unknown]
  - Complication of device removal [Unknown]
  - No adverse event [Unknown]

NARRATIVE: CASE EVENT DATE: 201610
